FAERS Safety Report 4429791-0 (Version None)
Quarter: 2004Q3

REPORT INFORMATION
  Report Type: 
  Country: None (occurrence: None)
  Receive Date: 20040816
  Receipt Date: 20040804
  Transmission Date: 20050211
  Serious: Yes (Hospitalization)
  Sender: FDA-Public Use
  Company Number: 2004215568DE

PATIENT
  Age: 69 Year
  Sex: Male

DRUGS (8)
  1. BEXTRA [Suspect]
     Indication: CERVICOBRACHIAL SYNDROME
     Dosage: 20 MG, QD, ORAL
     Route: 048
     Dates: start: 20040507, end: 20040517
  2. TETRAZEPAM [Concomitant]
  3. PROCAIN [Concomitant]
  4. METOPROLOL [Concomitant]
  5. ALLO-300 [Concomitant]
  6. BENALAPRIL (ENALAPRIL) [Concomitant]
  7. DIGOX MITE [Concomitant]
  8. TRAMADOLOR (TRAMADOL HYDROCHLORIDE) [Concomitant]

REACTIONS (10)
  - ACTINIC KERATOSIS [None]
  - ACUTE GENERALISED EXANTHEMATOUS PUSTULOSIS [None]
  - C-REACTIVE PROTEIN INCREASED [None]
  - CHILLS [None]
  - DRUG ERUPTION [None]
  - DYSPNOEA [None]
  - EXANTHEM [None]
  - PRURITUS [None]
  - SKIN BURNING SENSATION [None]
  - WHITE BLOOD CELL COUNT INCREASED [None]
